FAERS Safety Report 5992111-4 (Version None)
Quarter: 2008Q4

REPORT INFORMATION
  Report Type: 
  Country: None (occurrence: None)
  Receive Date: 20081211
  Receipt Date: 20081204
  Transmission Date: 20090506
  Serious: Yes (Hospitalization)
  Sender: FDA-Public Use
  Company Number: CA-MERCK-0812CAN00035

PATIENT
  Age: 67 Year
  Sex: Female

DRUGS (10)
  1. ZETIA [Suspect]
     Indication: HYPERCHOLESTEROLAEMIA
     Route: 048
  2. ASPIRIN [Concomitant]
     Route: 065
  3. CILAZAPRIL [Suspect]
     Route: 065
  4. DILTIAZEM HYDROCHLORIDE [Concomitant]
     Route: 065
  5. ROSUVASTATIN CALCIUM [Suspect]
     Route: 065
  6. VENLAFAXINE HYDROCHLORIDE [Concomitant]
     Route: 065
  7. FLUTICASONE PROPIONATE AND SALMETEROL XINAFOATE [Concomitant]
  8. CALCIUM CARBONATE AND ETIDRONATE SODIUM [Concomitant]
     Route: 065
  9. GLUCOSAMINE [Concomitant]
     Route: 065
  10. RANITIDINE [Concomitant]
     Route: 065

REACTIONS (3)
  - BLOOD CREATINE PHOSPHOKINASE INCREASED [None]
  - RENAL FAILURE [None]
  - RHABDOMYOLYSIS [None]
